FAERS Safety Report 17499560 (Version 1)
Quarter: 2020Q1

REPORT INFORMATION
  Report Type: Spontaneous
  Country: US (occurrence: US)
  Receive Date: 20200304
  Receipt Date: 20200304
  Transmission Date: 20200409
  Serious: No
  Sender: FDA-Public Use
  Company Number: US-PTC THERAPEUTICS, INC.-US-2019PTC001479

PATIENT
  Sex: Male
  Weight: 48.53 kg

DRUGS (2)
  1. EMFLAZA [Suspect]
     Active Substance: DEFLAZACORT
     Indication: MUSCULAR DYSTROPHY
     Dosage: 42 MG, TWO TIMES A WEEK ON WEEKENDS
     Route: 048
  2. EMFLAZA [Suspect]
     Active Substance: DEFLAZACORT
     Dosage: 42 MG, QD
     Route: 048

REACTIONS (2)
  - General physical health deterioration [Unknown]
  - Off label use [Unknown]
